FAERS Safety Report 7249124-4 (Version None)
Quarter: 2011Q1

REPORT INFORMATION
  Report Type: 
  Country: None (occurrence: None)
  Receive Date: 20110128
  Receipt Date: 20110118
  Transmission Date: 20110831
  Serious: Yes (Other)
  Sender: FDA-Public Use
  Company Number: CA-BRISTOL-MYERS SQUIBB COMPANY-15178023

PATIENT
  Age: 50 Year
  Sex: Female

DRUGS (10)
  1. ACETAMINOPHEN [Concomitant]
  2. MAXALT [Concomitant]
  3. CELEBREX [Concomitant]
  4. MICARDIS [Concomitant]
  5. ORENCIA [Suspect]
     Indication: RHEUMATOID ARTHRITIS
     Dosage: LAST DOSE:13DEC10,24,NO OF INF:25.
     Route: 042
     Dates: start: 20090402
  6. NEXIUM [Concomitant]
  7. METHOTREXATE [Concomitant]
  8. PREDNISONE [Concomitant]
  9. ENBREL [Concomitant]
  10. SINGULAIR [Concomitant]

REACTIONS (2)
  - ASTHMA [None]
  - BRONCHITIS [None]
